FAERS Safety Report 4341809-2 (Version None)
Quarter: 2004Q2

REPORT INFORMATION
  Report Type: 
  Country: None (occurrence: None)
  Receive Date: 20040420
  Receipt Date: 20040407
  Transmission Date: 20050107
  Serious: Yes (Death, Life-Threatening, Disabling, Other)
  Sender: FDA-Public Use
  Company Number: GB-GLAXOSMITHKLINE-B0329707A

PATIENT
  Age: 21 Year
  Sex: Male
  Weight: 70 kg

DRUGS (2)
  1. LAMOTRIGINE [Suspect]
     Indication: EPILEPSY
     Dosage: 600MG PER DAY
     Route: 048
     Dates: end: 20040313
  2. CARBAMAZEPINE [Suspect]
     Dosage: 1200MG PER DAY
     Route: 048
     Dates: start: 20031111, end: 20040313

REACTIONS (2)
  - PAIN [None]
  - SUDDEN DEATH [None]
